FAERS Safety Report 13896028 (Version 1)
Quarter: 2017Q3

REPORT INFORMATION
  Report Type: Spontaneous
  Country: US (occurrence: US)
  Receive Date: 20170823
  Receipt Date: 20170823
  Transmission Date: 20171127
  Serious: No
  Sender: FDA-Public Use
  Company Number: US-TEVA-752728ACC

PATIENT
  Sex: Female

DRUGS (3)
  1. ALPRAZOLAM ODT (AELLC) [Suspect]
     Active Substance: ALPRAZOLAM
  2. METOPROLOL SUCCINATE. [Suspect]
     Active Substance: METOPROLOL SUCCINATE
     Dates: start: 2014
  3. WARFARIN [Suspect]
     Active Substance: WARFARIN

REACTIONS (1)
  - Epigastric discomfort [Not Recovered/Not Resolved]

NARRATIVE: CASE EVENT DATE: 2014
